FAERS Safety Report 4420314-9 (Version None)
Quarter: 2004Q3

REPORT INFORMATION
  Report Type: 
  Country: None (occurrence: None)
  Receive Date: 20040804
  Receipt Date: 20040721
  Transmission Date: 20050211
  Serious: Yes (Hospitalization)
  Sender: FDA-Public Use
  Company Number: US-SHR-03-018645

PATIENT
  Age: 41 Year
  Sex: Female
  Weight: 65.8 kg

DRUGS (1)
  1. BETASERON [Suspect]
     Indication: MULTIPLE SCLEROSIS RELAPSE
     Dosage: 6.5 MIU, EVERY 2D, SUBCUTANEOUS
     Route: 058
     Dates: start: 20031106

REACTIONS (3)
  - DELUSION OF GRANDEUR [None]
  - EUPHORIC MOOD [None]
  - VISION BLURRED [None]
